FAERS Safety Report 5149406-6 (Version None)
Quarter: 2006Q4

REPORT INFORMATION
  Report Type: 
  Country: None (occurrence: None)
  Receive Date: 20061113
  Receipt Date: 20051230
  Transmission Date: 20070319
  Serious: No
  Sender: FDA-Public Use
  Company Number: 430878

PATIENT
  Age: 80 Year
  Sex: Female

DRUGS (9)
  1. COREG [Suspect]
     Dosage: 25MG TWICE PER DAY
     Route: 048
  2. COMBIVENT [Concomitant]
  3. AZMACORT [Concomitant]
  4. NEXIUM [Concomitant]
  5. PLAVIX [Concomitant]
  6. SYNTHROID [Concomitant]
  7. BENICAR [Concomitant]
  8. NORVASC [Concomitant]
  9. VYTORIN [Concomitant]

REACTIONS (2)
  - DYSPNOEA [None]
  - HYPERHIDROSIS [None]
